FAERS Safety Report 14154105 (Version 2)
Quarter: 2017Q4

REPORT INFORMATION
  Report Type: Spontaneous
  Country: AT (occurrence: AT)
  Receive Date: 20171102
  Receipt Date: 20171116
  Transmission Date: 20180321
  Serious: Yes (Hospitalization, Other)
  Sender: FDA-Public Use
  Company Number: AT-TAKEDA-2017TUS022554

PATIENT
  Sex: Male

DRUGS (4)
  1. PANTOLOC                           /01263204/ [Concomitant]
     Active Substance: PANTOPRAZOLE SODIUM
     Dosage: UNK
  2. MIRTABENE [Concomitant]
     Active Substance: MIRTAZAPINE
     Dosage: UNK
  3. ENTYVIO [Suspect]
     Active Substance: VEDOLIZUMAB
     Indication: CROHN^S DISEASE
     Dosage: UNK
     Route: 065
     Dates: start: 201612
  4. APREDNISLON [Concomitant]
     Active Substance: PREDNISOLONE
     Dosage: 5 MG, UNK

REACTIONS (3)
  - Intestinal stenosis [Unknown]
  - Bronchiolitis [Unknown]
  - Ileus [Unknown]

NARRATIVE: CASE EVENT DATE: 201708
